FAERS Safety Report 17831142 (Version 1)
Quarter: 2020Q2

REPORT INFORMATION
  Report Type: Report from Study
  Country: None (occurrence: US)
  Receive Date: 20200527
  Receipt Date: 20200527
  Transmission Date: 20200714
  Serious: No
  Sender: FDA-Public Use
  Company Number: US-BIOVITRUM-2019US1204

PATIENT
  Sex: Female

DRUGS (12)
  1. COLCHICINE. [Concomitant]
     Active Substance: COLCHICINE
  2. LOSARTAN POTASSIUM. [Concomitant]
     Active Substance: LOSARTAN POTASSIUM
  3. PROGESTERONE. [Concomitant]
     Active Substance: PROGESTERONE
     Dosage: INJECTIONS ONCE WEEKLY
  4. MULTIVITAMIN [Concomitant]
     Active Substance: VITAMINS
  5. FLUOXETINE [Concomitant]
     Active Substance: FLUOXETINE HYDROCHLORIDE
  6. RESTORA [Concomitant]
  7. KINERET [Suspect]
     Active Substance: ANAKINRA
     Route: 058
     Dates: start: 20190514
  8. TYLENOL [Concomitant]
     Active Substance: ACETAMINOPHEN
  9. VITAMIN B12 [Concomitant]
     Active Substance: CYANOCOBALAMIN
  10. PROGESTERONE. [Concomitant]
     Active Substance: PROGESTERONE
  11. CELEBREX [Concomitant]
     Active Substance: CELECOXIB
  12. BIOTIN [Concomitant]
     Active Substance: BIOTIN

REACTIONS (6)
  - Autoscopy [Not Recovered/Not Resolved]
  - Memory impairment [Unknown]
  - Lethargy [Unknown]
  - Feeling abnormal [Unknown]
  - Pain [Unknown]
  - Anxiety [Unknown]
